FAERS Safety Report 6595404-5 (Version None)
Quarter: 2010Q1

REPORT INFORMATION
  Report Type: 
  Country: None (occurrence: None)
  Receive Date: 20100223
  Receipt Date: 20100219
  Transmission Date: 20100710
  Serious: Yes (Other)
  Sender: FDA-Public Use
  Company Number: US-ASTRAZENECA-2009UW04216

PATIENT
  Age: 47 Year
  Sex: Female
  Weight: 115.2 kg

DRUGS (27)
  1. SEROQUEL [Suspect]
     Indication: BIPOLAR DISORDER
     Dosage: 25 MG TO 400 MG
     Route: 048
     Dates: start: 20060901, end: 20070501
  2. SEROQUEL [Suspect]
     Indication: DEPRESSION
     Dosage: 25 MG TO 400 MG
     Route: 048
     Dates: start: 20060901, end: 20070501
  3. SEROQUEL [Suspect]
     Indication: ANXIETY
     Dosage: 25 MG TO 400 MG
     Route: 048
     Dates: start: 20060901, end: 20070501
  4. SEROQUEL [Suspect]
     Indication: PSYCHOTIC DISORDER
     Dosage: 25 MG TO 400 MG
     Route: 048
     Dates: start: 20060901, end: 20070501
  5. SEROQUEL [Suspect]
     Dosage: 100 MG TO 400 MG
     Route: 048
     Dates: start: 20070101, end: 20071001
  6. SEROQUEL [Suspect]
     Dosage: 100 MG TO 400 MG
     Route: 048
     Dates: start: 20070101, end: 20071001
  7. SEROQUEL [Suspect]
     Dosage: 100 MG TO 400 MG
     Route: 048
     Dates: start: 20070101, end: 20071001
  8. SEROQUEL [Suspect]
     Dosage: 100 MG TO 400 MG
     Route: 048
     Dates: start: 20070101, end: 20071001
  9. SEROQUEL [Suspect]
     Dosage: 300MG QAM AND 400MG QHS
     Route: 048
     Dates: start: 20070419
  10. SEROQUEL [Suspect]
     Dosage: 300MG QAM AND 400MG QHS
     Route: 048
     Dates: start: 20070419
  11. SEROQUEL [Suspect]
     Dosage: 300MG QAM AND 400MG QHS
     Route: 048
     Dates: start: 20070419
  12. SEROQUEL [Suspect]
     Dosage: 300MG QAM AND 400MG QHS
     Route: 048
     Dates: start: 20070419
  13. ABILIFY [Concomitant]
     Dates: start: 20081001
  14. RISPERDAL [Concomitant]
     Dosage: 0.5 MG TO 1 MG
     Dates: start: 20080101, end: 20081001
  15. LORAZEPAM [Concomitant]
     Dates: start: 20070101, end: 20080201
  16. BUSPIRONE HCL [Concomitant]
     Dosage: 10 TO 15 MG
     Dates: start: 20070901, end: 20080301
  17. EFFEXOR XR [Concomitant]
     Indication: DEPRESSION
     Dates: start: 20070101, end: 20080301
  18. EFFEXOR XR [Concomitant]
     Route: 048
     Dates: start: 20070419
  19. TRAZODONE HCL [Concomitant]
     Dates: start: 20070101, end: 20070701
  20. METHADONE [Concomitant]
     Dates: start: 20070101, end: 20071201
  21. DYAZIDE [Concomitant]
  22. PRILOSEC [Concomitant]
  23. LOTENSIN [Concomitant]
  24. FLOVENT [Concomitant]
  25. ALBUTEROL [Concomitant]
  26. DESYREL [Concomitant]
     Indication: INSOMNIA
     Dosage: 50MG-100MG AT NIGHT
     Dates: start: 20070419
  27. ATIVAN [Concomitant]
     Dosage: 1 MG PO BID PRN
     Route: 048
     Dates: start: 20070419

REACTIONS (8)
  - DEMENTIA [None]
  - DIABETES MELLITUS [None]
  - FEAR [None]
  - HALLUCINATION [None]
  - HYPERGLYCAEMIA [None]
  - MAJOR DEPRESSION [None]
  - NEUROPATHY PERIPHERAL [None]
  - PARANOID PERSONALITY DISORDER [None]
